FAERS Safety Report 15278141 (Version 1)
Quarter: 2018Q3

REPORT INFORMATION
  Report Type: Spontaneous
  Country: NL (occurrence: NL)
  Receive Date: 20180814
  Receipt Date: 20180814
  Transmission Date: 20181010
  Serious: Yes (Hospitalization)
  Sender: FDA-Public Use
  Company Number: NL-TEVA-2018-NL-940548

PATIENT

DRUGS (5)
  1. 5?FLUOROURACIL [Suspect]
     Active Substance: FLUOROURACIL
     Indication: COLORECTAL CANCER
     Dosage: DATE OF MOST RECENT DOSE PRIOR TO SAE 13/JUL/2017, WITHIN 4 MINUTES.
     Route: 040
     Dates: start: 20170209
  2. AVASTIN [Suspect]
     Active Substance: BEVACIZUMAB
     Indication: COLORECTAL CANCER
     Dosage: DATE OF MOST RECENT DOSE PRIOR TO SAE 13/JUL/2017, IN 15?30 MINUTES.
     Route: 042
     Dates: start: 20170209
  3. 5?FLUOROURACIL [Suspect]
     Active Substance: FLUOROURACIL
     Dosage: DATE OF MOST RECENT DOSE PRIOR TO SAE 13/JUL/2017, IN 46 HOURS.
     Route: 041
     Dates: start: 20170209
  4. LEUCOVORIN. [Suspect]
     Active Substance: LEUCOVORIN
     Indication: COLORECTAL CANCER
     Dosage: DATE OF MOST RECENT DOSE PRIOR TO SAE 13/JUL/2017, IN 120 MINUTES
     Route: 042
     Dates: start: 20170209
  5. OXALIPLATIN. [Suspect]
     Active Substance: OXALIPLATIN
     Indication: COLORECTAL CANCER
     Dosage: DATE OF MOST RECENT DOSE PRIOR TO SAE 13/JUL/2017
     Route: 042
     Dates: start: 20170209

REACTIONS (1)
  - Device related infection [Recovered/Resolved]

NARRATIVE: CASE EVENT DATE: 20170901
